FAERS Safety Report 5689216-4 (Version None)
Quarter: 2008Q1

REPORT INFORMATION
  Report Type: 
  Country: None (occurrence: None)
  Receive Date: 20080331
  Receipt Date: 20080320
  Transmission Date: 20080703
  Serious: Yes (Other)
  Sender: FDA-Public Use
  Company Number: NL-JNJFOC-20080305314

PATIENT
  Age: 15 Year

DRUGS (2)
  1. REMICADE [Suspect]
     Indication: CROHN'S DISEASE
     Dosage: INFUSIONS AT WEEK 0,2,6
     Route: 042
  2. METHOTREXATE [Concomitant]

REACTIONS (1)
  - GRANULOCYTOPENIA [None]
